FAERS Safety Report 7653129-9 (Version None)
Quarter: 2011Q3

REPORT INFORMATION
  Report Type: 
  Country: None (occurrence: None)
  Receive Date: 20110803
  Receipt Date: 20110729
  Transmission Date: 20111222
  Serious: Yes (Death)
  Sender: FDA-Public Use
  Company Number: JP-SANOFI-AVENTIS-2011SA038195

PATIENT
  Age: 75 Year
  Sex: Female
  Weight: 41 kg

DRUGS (10)
  1. NEO-MERCAZOLE TAB [Concomitant]
     Indication: HYPERTHYROIDISM
     Dates: start: 20110601
  2. ALLEGRA [Suspect]
     Route: 048
     Dates: start: 20101014, end: 20101112
  3. ALLEGRA [Suspect]
     Route: 048
     Dates: start: 20100401, end: 20100428
  4. ALLEGRA [Suspect]
     Route: 048
     Dates: start: 20100401, end: 20100428
  5. ALLEGRA [Suspect]
     Route: 048
     Dates: start: 20100520, end: 20100728
  6. RIZE [Concomitant]
     Route: 048
     Dates: start: 20110601, end: 20110601
  7. ALLEGRA [Suspect]
     Indication: DERMATITIS ALLERGIC
     Route: 048
     Dates: start: 20100520, end: 20100728
  8. ALLEGRA [Suspect]
     Route: 048
     Dates: start: 20110223, end: 20110531
  9. ALLEGRA [Suspect]
     Route: 048
     Dates: start: 20101014, end: 20101112
  10. ALLEGRA [Suspect]
     Route: 048
     Dates: start: 20110223, end: 20110531

REACTIONS (4)
  - HEPATITIS FULMINANT [None]
  - JAUNDICE [None]
  - TACHYCARDIA [None]
  - PLATELET COUNT DECREASED [None]
